FAERS Safety Report 12409441 (Version 1)
Quarter: 2016Q2

REPORT INFORMATION
  Report Type: Report from Study
  Country: US (occurrence: US)
  Receive Date: 20160526
  Receipt Date: 20160526
  Transmission Date: 20160815
  Serious: Yes (Hospitalization)
  Sender: FDA-Public Use
  Company Number: US-ASTRAZENECA-2016SE54146

PATIENT
  Age: 801 Month
  Sex: Female

DRUGS (2)
  1. AZD2281 [Suspect]
     Active Substance: OLAPARIB
     Indication: ENDOMETRIAL CANCER RECURRENT
     Route: 048
     Dates: end: 20160513
  2. AZD2014 [Suspect]
     Active Substance: INVESTIGATIONAL PRODUCT
     Indication: ENDOMETRIAL CANCER RECURRENT
     Dosage: 125 MG BID 2 DAYS ON/5 DAYS OFF
     Route: 048
     Dates: end: 20160513

REACTIONS (1)
  - Lung infection [Unknown]

NARRATIVE: CASE EVENT DATE: 20160513
